FAERS Safety Report 23898694 (Version 1)
Quarter: 2024Q2

REPORT INFORMATION
  Report Type: Spontaneous
  Country: US (occurrence: US)
  Receive Date: 20240525
  Receipt Date: 20240525
  Transmission Date: 20240715
  Serious: No
  Sender: FDA-Public Use
  Company Number: US-TEVA-VS-3198880

PATIENT

DRUGS (3)
  1. TESTOSTERONE [Suspect]
     Active Substance: TESTOSTERONE
     Indication: Product used for unknown indication
     Dosage: 1.62%, 88 GM/60, 60 PUMP ACTUATIONS
     Route: 065
  2. TESTOSTERONE [Suspect]
     Active Substance: TESTOSTERONE
     Dosage: 1.62% 20.25 MG/1.25 GRAMS, 30 PACKETS
     Route: 065
  3. TESTOSTERONE [Suspect]
     Active Substance: TESTOSTERONE
     Dosage: 1.62% 40.5 MG/2.5 GRAMS, 30 PACKETS
     Route: 065

REACTIONS (3)
  - Product use issue [Unknown]
  - Sleep disorder [Unknown]
  - Fatigue [Unknown]
